FAERS Safety Report 8927847 (Version 1)
Quarter: 2012Q4

REPORT INFORMATION
  Report Type: 
  Country: US (occurrence: US)
  Receive Date: 20121127
  Receipt Date: 20121127
  Transmission Date: 20130627
  Serious: No
  Sender: FDA-Public Use
  Company Number: US-MYLANLABS-2012S1020640

PATIENT
  Age: 3 Year
  Sex: Female

DRUGS (4)
  1. MONTELUKAST SODIUM [Suspect]
     Indication: SEASONAL ALLERGY
     Route: 048
     Dates: start: 20121001
  2. MONTELUKAST SODIUM [Suspect]
     Indication: HYPERSENSITIVITY
     Route: 048
     Dates: start: 20121001
  3. MONTELUKAST SODIUM [Suspect]
     Indication: BRONCHIAL HYPERREACTIVITY
     Route: 048
     Dates: start: 20121001
  4. ZYRTEC [Concomitant]
     Indication: SEASONAL ALLERGY
     Route: 048
     Dates: start: 2010

REACTIONS (2)
  - Oral pain [Not Recovered/Not Resolved]
  - Oral discomfort [Not Recovered/Not Resolved]
